FAERS Safety Report 14027357 (Version 5)
Quarter: 2018Q1

REPORT INFORMATION
  Report Type: Spontaneous
  Country: JP (occurrence: JP)
  Receive Date: 20170929
  Receipt Date: 20180129
  Transmission Date: 20180508
  Serious: Yes (Other)
  Sender: FDA-Public Use
  Company Number: PHJP2017JP029527

PATIENT
  Sex: Female

DRUGS (3)
  1. METHOTREXATE. [Concomitant]
     Active Substance: METHOTREXATE
     Indication: PRODUCT USED FOR UNKNOWN INDICATION
     Dosage: 4-8 MG/WEEK, UNK
     Route: 048
     Dates: start: 20160615, end: 20161222
  2. COSENTYX [Suspect]
     Active Substance: SECUKINUMAB
     Indication: PUSTULAR PSORIASIS
     Dosage: 300 MG, 4W
     Route: 058
     Dates: end: 20160802
  3. COSENTYX [Suspect]
     Active Substance: SECUKINUMAB
     Indication: PSORIATIC ARTHROPATHY

REACTIONS (8)
  - Malignant peritoneal neoplasm [Not Recovered/Not Resolved]
  - Psoriasis [Recovering/Resolving]
  - Metastases to diaphragm [Not Recovered/Not Resolved]
  - Peritoneal disorder [Unknown]
  - Ascites [Unknown]
  - Metastases to liver [Not Recovered/Not Resolved]
  - Abdominal distension [Unknown]
  - Rash [Unknown]

NARRATIVE: CASE EVENT DATE: 20170808
